FAERS Safety Report 16125503 (Version 2)
Quarter: 2019Q2

REPORT INFORMATION
  Report Type: Spontaneous
  Country: IT (occurrence: IT)
  Receive Date: 20190327
  Receipt Date: 20190528
  Transmission Date: 20190711
  Serious: Yes (Other)
  Sender: FDA-Public Use
  Company Number: IT-WHANIN PHARM. CO., LTD.-2019M1029026

PATIENT
  Age: 28 Year
  Sex: Female
  Weight: 65 kg

DRUGS (2)
  1. CLOZAPINE. [Suspect]
     Active Substance: CLOZAPINE
     Indication: SCHIZOPHRENIA
     Dosage: 200 MILLIGRAM, QD
  2. CLOZAPINE. [Suspect]
     Active Substance: CLOZAPINE
     Dosage: 200 MILLIGRAM, QD

REACTIONS (8)
  - Dyspnoea [Recovered/Resolved]
  - Red blood cell sedimentation rate increased [Unknown]
  - Pericardial effusion [Recovered/Resolved]
  - Brain natriuretic peptide increased [Unknown]
  - Chest pain [Recovered/Resolved]
  - C-reactive protein increased [Unknown]
  - Pericarditis [Recovered/Resolved]
  - Tachycardia [Recovered/Resolved]
